FAERS Safety Report 26125198 (Version 1)
Quarter: 2025Q4

REPORT INFORMATION
  Report Type: Spontaneous
  Country: US (occurrence: None)
  Receive Date: 20251204
  Receipt Date: 20251204
  Transmission Date: 20260117
  Serious: Yes (Hospitalization)
  Sender: FDA-CTU
  Company Number: None

PATIENT
  Sex: Female

DRUGS (2)
  1. ACTEMRA [Suspect]
     Active Substance: TOCILIZUMAB
     Indication: Rheumatoid arthritis
     Dosage: OTHER QUANTITY : 0.9ML (162 MG);?FREQUENCY : WEEKLY;?
     Route: 058
     Dates: start: 20240507
  2. MYCOPHENOLATE MOFETIL [Concomitant]
     Active Substance: MYCOPHENOLATE MOFETIL

REACTIONS (5)
  - Pneumonia [None]
  - Bronchitis [None]
  - Neoplasm malignant [None]
  - Loss of personal independence in daily activities [None]
  - Therapy interrupted [None]
